FAERS Safety Report 8050648-0 (Version None)
Quarter: 2012Q1

REPORT INFORMATION
  Report Type: 
  Country: None (occurrence: None)
  Receive Date: 20120117
  Receipt Date: 20120111
  Transmission Date: 20120608
  Serious: Yes (Hospitalization)
  Sender: FDA-Public Use
  Company Number: US-PFIZER INC-K200700975

PATIENT
  Age: 41 Year
  Sex: Male

DRUGS (4)
  1. LYRICA [Suspect]
     Dosage: UNK
  2. SKELAXIN [Suspect]
     Indication: MUSCLE SPASMS
     Dosage: 800 MG, 3X/DAY
     Route: 048
     Dates: start: 20070701, end: 20070701
  3. CELEBREX [Concomitant]
     Dosage: UNK
  4. IBUPROFEN [Concomitant]
     Dosage: UNK

REACTIONS (2)
  - PANCYTOPENIA [None]
  - BACK PAIN [None]
